FAERS Safety Report 6354757-3 (Version None)
Quarter: 2009Q3

REPORT INFORMATION
  Report Type: 
  Country: None (occurrence: None)
  Receive Date: 20090909
  Receipt Date: 20090824
  Transmission Date: 20100115
  Serious: Yes (Other)
  Sender: FDA-Public Use
  Company Number: 2009EU003376

PATIENT
  Age: 64 Year
  Sex: Female

DRUGS (3)
  1. TACROLIMUS [Suspect]
     Indication: RENAL TRANSPLANT
     Dosage: D
  2. MYCOPHENOLATE MOFETIL [Concomitant]
  3. CORTICOSTEROIDS [Concomitant]

REACTIONS (3)
  - BLOOD CREATININE INCREASED [None]
  - OPTIC NEUROPATHY [None]
  - VISUAL ACUITY REDUCED [None]
